FAERS Safety Report 12241126 (Version 1)
Quarter: 2016Q2

REPORT INFORMATION
  Report Type: Spontaneous
  Country: US (occurrence: None)
  Receive Date: 20160405
  Receipt Date: 20160405
  Transmission Date: 20160815
  Serious: No
  Sender: FDA-Public Use
  Company Number: None

PATIENT
  Age: 74 Year
  Sex: Male
  Weight: 80.29 kg

DRUGS (14)
  1. METOPROLOL. [Concomitant]
     Active Substance: METOPROLOL
  2. UROXATRAL [Concomitant]
     Active Substance: ALFUZOSIN HYDROCHLORIDE
  3. ZETIA [Concomitant]
     Active Substance: EZETIMIBE
  4. AMLODIPINE [Concomitant]
     Active Substance: AMLODIPINE BESYLATE
  5. ZANTAC [Concomitant]
     Active Substance: RANITIDINE HYDROCHLORIDE
  6. COENZYME Q10 [Concomitant]
     Active Substance: UBIDECARENONE
  7. VITAMIN D [Concomitant]
     Active Substance: CHOLECALCIFEROL
  8. AVODART [Concomitant]
     Active Substance: DUTASTERIDE
  9. PLAVIX [Concomitant]
     Active Substance: CLOPIDOGREL BISULFATE
  10. ASMANEX [Concomitant]
     Active Substance: MOMETASONE FUROATE
  11. GLUCOSAMINE SULFATE [Concomitant]
     Active Substance: GLUCOSAMINE SULFATE
  12. RESTASIS [Suspect]
     Active Substance: CYCLOSPORINE
     Indication: DRY EYE
     Route: 031
     Dates: start: 20160329, end: 20160402
  13. LIPITOR [Concomitant]
     Active Substance: ATORVASTATIN CALCIUM
  14. FISH OIL [Concomitant]
     Active Substance: FISH OIL

REACTIONS (7)
  - Vision blurred [None]
  - Sinus congestion [None]
  - Furuncle [None]
  - Initial insomnia [None]
  - Epistaxis [None]
  - Malaise [None]
  - Middle insomnia [None]

NARRATIVE: CASE EVENT DATE: 20160402
